FAERS Safety Report 15082051 (Version 1)
Quarter: 2018Q2

REPORT INFORMATION
  Report Type: Report from Study
  Country: GR (occurrence: GR)
  Receive Date: 20180628
  Receipt Date: 20180628
  Transmission Date: 20180711
  Serious: Yes (Hospitalization)
  Sender: FDA-Public Use
  Company Number: GR-ROCHE-1947065

PATIENT
  Age: 57 Year
  Sex: Female
  Weight: 90 kg

DRUGS (4)
  1. PERTUZUMAB. [Suspect]
     Active Substance: PERTUZUMAB
     Indication: BREAST CANCER
     Dosage: LASTD DOSE PRIOR TO ONSET OF EVENT ON 16/MAY/2017.
     Route: 042
     Dates: start: 20170102
  2. TRASTUZUMAB EMTANSINE [Suspect]
     Active Substance: ADO-TRASTUZUMAB EMTANSINE
     Indication: BREAST CANCER
     Route: 042
     Dates: start: 20170801
  3. TRASTUZUMAB. [Suspect]
     Active Substance: TRASTUZUMAB
     Indication: BREAST CANCER
     Dosage: LAST DOSE PRIOR TO ONSET OF EVENTS 16/MAY/2017
     Route: 058
     Dates: start: 20170102
  4. DOCETAXEL. [Suspect]
     Active Substance: DOCETAXEL
     Indication: BREAST CANCER
     Dosage: LAST DOSE PRIOR TO ONSET OF EVENT 16/MAY/2017.
     Route: 042
     Dates: start: 20170102

REACTIONS (2)
  - Urinary tract infection [Recovered/Resolved]
  - Bone marrow infiltration [Recovered/Resolved]

NARRATIVE: CASE EVENT DATE: 20170605
